FAERS Safety Report 6206360-3 (Version None)
Quarter: 2009Q2

REPORT INFORMATION
  Report Type: 
  Country: None (occurrence: None)
  Receive Date: 20090526
  Receipt Date: 20090514
  Transmission Date: 20091009
  Serious: Yes (Other)
  Sender: FDA-Public Use
  Company Number: 2009005558

PATIENT
  Age: 88 Year
  Sex: Male

DRUGS (2)
  1. TRISENOX [Suspect]
     Indication: MYELODYSPLASTIC SYNDROME
     Dosage: COMPLETED CYCLE 1 WEEK 8, INTRAVENOUS
     Route: 042
  2. CYTARABINE [Concomitant]

REACTIONS (9)
  - ACUTE MYELOID LEUKAEMIA [None]
  - BLAST CELL CRISIS [None]
  - CATHETER SITE HAEMATOMA [None]
  - DIARRHOEA [None]
  - DISEASE PROGRESSION [None]
  - HYDROCELE [None]
  - MYELODYSPLASTIC SYNDROME [None]
  - PNEUMONIA [None]
  - UPPER RESPIRATORY TRACT INFECTION [None]
